FAERS Safety Report 6824680-6 (Version None)
Quarter: 2010Q3

REPORT INFORMATION
  Report Type: 
  Country: None (occurrence: None)
  Receive Date: 20100708
  Receipt Date: 20061112
  Transmission Date: 20110219
  Serious: No
  Sender: FDA-Public Use
  Company Number: US-PFIZER INC-2006140226

PATIENT
  Sex: Female
  Weight: 93.44 kg

DRUGS (6)
  1. CHANTIX [Suspect]
     Indication: SMOKING CESSATION THERAPY
     Route: 048
     Dates: start: 20060101
  2. TRIAMTERENE [Concomitant]
     Route: 048
  3. FLUTICASONE [Concomitant]
     Route: 045
  4. DALLERGY [Concomitant]
     Route: 048
  5. NIASPAN [Concomitant]
     Route: 048
  6. ANTIBIOTICS [Concomitant]

REACTIONS (4)
  - INSOMNIA [None]
  - NERVOUS SYSTEM DISORDER [None]
  - NIGHTMARE [None]
  - SLEEP DISORDER [None]
